FAERS Safety Report 4673807-3 (Version None)
Quarter: 2005Q2

REPORT INFORMATION
  Report Type: 
  Country: None (occurrence: None)
  Receive Date: 20050524
  Receipt Date: 20050517
  Transmission Date: 20051028
  Serious: Yes (Hospitalization)
  Sender: FDA-Public Use
  Company Number: DEWYE672717MAY05

PATIENT
  Age: 45 Year
  Sex: Male

DRUGS (3)
  1. LORAZEPAM [Suspect]
     Dosage: OVERDOSE AMOUNT, ORAL
     Route: 048
     Dates: start: 20050515, end: 20050515
  2. TRIMIPRAMINE MALEATE [Suspect]
     Dosage: OVERDOSE AMOUNT,ORAL
     Route: 048
     Dates: start: 20050515, end: 20050515
  3. VENLAFAXINE HCL [Suspect]
     Dosage: OVERDOSE AMOUNT, ORAL
     Route: 048
     Dates: start: 20050515, end: 20050515

REACTIONS (9)
  - ASPIRATION [None]
  - BODY TEMPERATURE DECREASED [None]
  - BOWEL SOUNDS ABNORMAL [None]
  - BRONCHOSPASM [None]
  - COMA [None]
  - INTENTIONAL MISUSE [None]
  - MYOCLONUS [None]
  - OVERDOSE [None]
  - VOMITING [None]
